FAERS Safety Report 18057966 (Version 1)
Quarter: 2020Q3

REPORT INFORMATION
  Report Type: Spontaneous
  Country: AU (occurrence: AU)
  Receive Date: 20200723
  Receipt Date: 20200723
  Transmission Date: 20201103
  Serious: Yes (Other)
  Sender: FDA-Public Use
  Company Number: AU-ALKEM LABORATORIES LIMITED-AU-ALKEM-2020-03774

PATIENT
  Sex: Female

DRUGS (2)
  1. GABAPENTIN. [Suspect]
     Active Substance: GABAPENTIN
     Indication: PRODUCT USED FOR UNKNOWN INDICATION
     Dosage: UNK
     Route: 065
  2. LYRICA [Suspect]
     Active Substance: PREGABALIN
     Indication: PRODUCT USED FOR UNKNOWN INDICATION
     Dosage: UNK
     Route: 065

REACTIONS (12)
  - Swollen tongue [Unknown]
  - Incoherent [Unknown]
  - Diverticulitis [Unknown]
  - Swelling [Unknown]
  - Tremor [Unknown]
  - Hypoaesthesia [Unknown]
  - Large intestine infection [Unknown]
  - Lip swelling [Unknown]
  - Gastrointestinal disorder [Unknown]
  - Malaise [Unknown]
  - Feeling abnormal [Unknown]
  - Overdose [Unknown]
